FAERS Safety Report 11363349 (Version 1)
Quarter: 2015Q3

REPORT INFORMATION
  Report Type: Spontaneous
  Country: US (occurrence: None)
  Receive Date: 20150727
  Receipt Date: 20150727
  Transmission Date: 20151125
  Serious: Yes (Other)
  Sender: FDA-Public Use
  Company Number: 2014AP003641

PATIENT
  Age: 90 Year
  Sex: Female

DRUGS (2)
  1. METHOTREXATE (METHOTREXATE) [Suspect]
     Active Substance: METHOTREXATE
     Indication: PSORIASIS
     Dosage: 7.5-15MG WEEKLY
  2. CIPROFLOXACIN HYDROCHLORIDE (CIPROFLOXACIN) TABLET [Suspect]
     Active Substance: CIPROFLOXACIN HYDROCHLORIDE

REACTIONS (8)
  - Skin ulcer [None]
  - Abdominal discomfort [None]
  - Toxicity to various agents [None]
  - Mouth ulceration [None]
  - Drug interaction [None]
  - Platelet count decreased [None]
  - Blood creatinine increased [None]
  - Liver function test abnormal [None]
